FAERS Safety Report 9053130 (Version 3)
Quarter: 2013Q2

REPORT INFORMATION
  Report Type: Spontaneous
  Country: US (occurrence: US)
  Receive Date: 20130208
  Receipt Date: 20130618
  Transmission Date: 20140414
  Serious: No
  Sender: FDA-Public Use
  Company Number: US-BIOGENIDEC-2013BI010879

PATIENT
  Sex: Male

DRUGS (1)
  1. TYSABRI [Suspect]
     Indication: MULTIPLE SCLEROSIS
     Route: 042
     Dates: start: 20120305

REACTIONS (7)
  - Musculoskeletal stiffness [Not Recovered/Not Resolved]
  - Mobility decreased [Recovered/Resolved]
  - Balance disorder [Recovered/Resolved]
  - Muscle spasticity [Not Recovered/Not Resolved]
  - Back pain [Not Recovered/Not Resolved]
  - Muscle spasms [Not Recovered/Not Resolved]
  - Sensory disturbance [Not Recovered/Not Resolved]
